FAERS Safety Report 11795248 (Version 1)
Quarter: 2015Q4

REPORT INFORMATION
  Report Type: Spontaneous
  Country: US (occurrence: US)
  Receive Date: 20151202
  Receipt Date: 20151202
  Transmission Date: 20160305
  Serious: No
  Sender: FDA-Public Use
  Company Number: US-GLAXOSMITHKLINE-US2015168045

PATIENT
  Age: 48 Year
  Sex: Female

DRUGS (3)
  1. BENLYSTA [Suspect]
     Active Substance: BELIMUMAB
     Indication: SYSTEMIC LUPUS ERYTHEMATOSUS
     Route: 042
     Dates: start: 20150930
  2. PLAQUENIL [Concomitant]
     Active Substance: HYDROXYCHLOROQUINE SULFATE
  3. LEVOTHYROXINE. [Concomitant]
     Active Substance: LEVOTHYROXINE

REACTIONS (13)
  - Urinary tract infection [Not Recovered/Not Resolved]
  - Arthropathy [Unknown]
  - Swelling [Recovering/Resolving]
  - Myopia [Not Recovered/Not Resolved]
  - Fatigue [Not Recovered/Not Resolved]
  - Pyrexia [Not Recovered/Not Resolved]
  - Arthralgia [Recovering/Resolving]
  - Vision blurred [Not Recovered/Not Resolved]
  - Plantar fasciitis [Unknown]
  - Drug dose omission [Unknown]
  - Visual impairment [Not Recovered/Not Resolved]
  - Tendon injury [Unknown]
  - Hypermetropia [Not Recovered/Not Resolved]

NARRATIVE: CASE EVENT DATE: 2015
